FAERS Safety Report 13123880 (Version 1)
Quarter: 2017Q1

REPORT INFORMATION
  Report Type: Spontaneous
  Country: GB (occurrence: GB)
  Receive Date: 20170118
  Receipt Date: 20170118
  Transmission Date: 20170428
  Serious: Yes (Other)
  Sender: FDA-Public Use
  Company Number: GB-ROCHE-1880698

PATIENT
  Age: 49 Year
  Sex: Female

DRUGS (1)
  1. PERJETA [Suspect]
     Active Substance: PERTUZUMAB
     Indication: PRODUCT USED FOR UNKNOWN INDICATION
     Dosage: STOPPED AT 48ML
     Route: 065
     Dates: start: 20160614, end: 20160614

REACTIONS (6)
  - Back pain [Unknown]
  - Flushing [Unknown]
  - Rash pruritic [Unknown]
  - Heart rate increased [Unknown]
  - Dyspnoea [Unknown]
  - Blood pressure systolic increased [Unknown]

NARRATIVE: CASE EVENT DATE: 20160614
